FAERS Safety Report 7948701-2 (Version None)
Quarter: 2011Q4

REPORT INFORMATION
  Report Type: 
  Country: None (occurrence: None)
  Receive Date: 20111130
  Receipt Date: 20111130
  Transmission Date: 20120403
  Serious: Yes (Other)
  Sender: FDA-Public Use
  Company Number: None

PATIENT
  Sex: Female

DRUGS (2)
  1. SERTRALINE HYDROCHLORIDE [Suspect]
     Indication: MAJOR DEPRESSION
     Dosage: 100MG
     Route: 048
     Dates: start: 20090324, end: 20111129
  2. DEPLIN [Concomitant]
     Dosage: 15MG
     Route: 048
     Dates: start: 20110729, end: 20111129

REACTIONS (1)
  - CATARACT CONGENITAL [None]
